FAERS Safety Report 18923784 (Version 2)
Quarter: 2021Q1

REPORT INFORMATION
  Report Type: Spontaneous
  Country: FI (occurrence: FI)
  Receive Date: 20210222
  Receipt Date: 20210222
  Transmission Date: 20210420
  Serious: Yes (Hospitalization, Other)
  Sender: FDA-Public Use
  Company Number: FI-JNJFOC-20210218212

PATIENT
  Sex: Female

DRUGS (25)
  1. VALGANCICLOVIR. [Suspect]
     Active Substance: VALGANCICLOVIR
     Indication: INFECTION PROPHYLAXIS
     Route: 065
     Dates: start: 2020
  2. RITUXIMAB. [Suspect]
     Active Substance: RITUXIMAB
     Indication: SYSTEMIC SCLERODERMA
     Route: 042
     Dates: start: 201704
  3. PREDNISOLONE. [Suspect]
     Active Substance: PREDNISOLONE
     Indication: INFECTION PROPHYLAXIS
     Dosage: 20 MGX1
     Route: 065
     Dates: start: 201704
  4. MEDROL [Suspect]
     Active Substance: METHYLPREDNISOLONE
     Indication: PRODUCT USED FOR UNKNOWN INDICATION
     Route: 065
     Dates: start: 2019
  5. AMLODIPINE [Suspect]
     Active Substance: AMLODIPINE BESYLATE
     Indication: PRODUCT USED FOR UNKNOWN INDICATION
     Route: 065
     Dates: start: 2020
  6. SILDENAFIL. [Suspect]
     Active Substance: SILDENAFIL
     Indication: PRODUCT USED FOR UNKNOWN INDICATION
     Route: 065
     Dates: start: 201704
  7. CELLCEPT [Suspect]
     Active Substance: MYCOPHENOLATE MOFETIL\MYCOPHENOLATE MOFETIL HYDROCHLORIDE
     Indication: INFECTION PROPHYLAXIS
     Route: 065
     Dates: start: 2020
  8. PRIMASPAN [Suspect]
     Active Substance: ASPIRIN
     Route: 065
     Dates: start: 2020
  9. TRACLEER [Suspect]
     Active Substance: BOSENTAN
     Indication: PRODUCT USED FOR UNKNOWN INDICATION
     Route: 065
     Dates: start: 201710
  10. AZITHROMYCIN ANHYDROUS. [Suspect]
     Active Substance: AZITHROMYCIN ANHYDROUS
     Indication: INFECTION PROPHYLAXIS
     Route: 065
     Dates: start: 2020, end: 2020
  11. CALCIUM D [CALCIUM;COLECALCIFEROL] [Suspect]
     Active Substance: CALCIUM\CHOLECALCIFEROL
     Indication: PRODUCT USED FOR UNKNOWN INDICATION
     Route: 065
  12. CELLCEPT [Suspect]
     Active Substance: MYCOPHENOLATE MOFETIL\MYCOPHENOLATE MOFETIL HYDROCHLORIDE
     Route: 065
     Dates: start: 2020
  13. PREDNISOLONE. [Suspect]
     Active Substance: PREDNISOLONE
     Route: 065
     Dates: start: 2020
  14. SANDIMMUN [Suspect]
     Active Substance: CYCLOSPORINE
     Dosage: 50MG PLUS 25 MG
     Route: 065
     Dates: start: 2019
  15. RAMIPRIL. [Suspect]
     Active Substance: RAMIPRIL
     Indication: PRODUCT USED FOR UNKNOWN INDICATION
     Route: 065
     Dates: start: 2020
  16. SANDIMMUN [Suspect]
     Active Substance: CYCLOSPORINE
     Indication: INFECTION PROPHYLAXIS
     Dosage: 150MG PLUS 100 MG
     Route: 065
     Dates: start: 2020
  17. SANDIMMUN [Suspect]
     Active Substance: CYCLOSPORINE
     Dosage: 175MG PLUS 150 MG
     Route: 065
     Dates: start: 202011
  18. SANDIMMUN [Suspect]
     Active Substance: CYCLOSPORINE
     Route: 065
     Dates: start: 2020
  19. SANDIMMUN [Suspect]
     Active Substance: CYCLOSPORINE
     Route: 065
     Dates: start: 201710
  20. PREDNISOLONE. [Suspect]
     Active Substance: PREDNISOLONE
     Route: 065
     Dates: start: 202011
  21. VALCYTE [Suspect]
     Active Substance: VALGANCICLOVIR HYDROCHLORIDE
     Indication: PRODUCT USED FOR UNKNOWN INDICATION
     Route: 065
  22. AMLODIPINE [Suspect]
     Active Substance: AMLODIPINE BESYLATE
     Route: 065
     Dates: start: 2019
  23. PREDNISOLONE. [Suspect]
     Active Substance: PREDNISOLONE
     Dosage: 20?40 MG X 1
     Route: 065
     Dates: start: 201710
  24. PRIMASPAN [Suspect]
     Active Substance: ASPIRIN
     Indication: PRODUCT USED FOR UNKNOWN INDICATION
     Route: 065
     Dates: start: 201704
  25. LEFLUNOMIDE. [Suspect]
     Active Substance: LEFLUNOMIDE
     Indication: PRODUCT USED FOR UNKNOWN INDICATION
     Dosage: 20 MGX1
     Route: 065
     Dates: start: 201704, end: 201710

REACTIONS (15)
  - Nasopharyngitis [Unknown]
  - Productive cough [Unknown]
  - Skin ulcer [Recovering/Resolving]
  - Cerebrovascular accident [Unknown]
  - Infected skin ulcer [Unknown]
  - Dyspnoea [Recovered/Resolved]
  - Musculoskeletal stiffness [Unknown]
  - Urinary tract infection [Unknown]
  - Off label use [Unknown]
  - Deafness [Unknown]
  - Pneumonia [Unknown]
  - Headache [Unknown]
  - Nausea [Unknown]
  - Pneumocystis jirovecii infection [Unknown]
  - Product use in unapproved indication [Unknown]

NARRATIVE: CASE EVENT DATE: 201704
